FAERS Safety Report 7893235-7 (Version None)
Quarter: 2011Q4

REPORT INFORMATION
  Report Type: 
  Country: None (occurrence: None)
  Receive Date: 20111104
  Receipt Date: 20111101
  Transmission Date: 20120403
  Serious: Yes (Death, Hospitalization)
  Sender: FDA-Public Use
  Company Number: PHEH2011US08398

PATIENT
  Sex: Male

DRUGS (2)
  1. BLOOD TRANSFUSION, AUXILIARY PRODUCTS [Concomitant]
     Dosage: 11 MONTHS UNK
  2. EXJADE [Suspect]
     Indication: IRON OVERLOAD
     Dosage: 1000 MG IN MORNING AND 500 MG IN EVENING
     Dates: start: 20110510, end: 20111012

REACTIONS (8)
  - NEOPLASM MALIGNANT [None]
  - PYREXIA [None]
  - PNEUMONIA [None]
  - MENTAL DISORDER [None]
  - COUGH [None]
  - NEOPLASM PROGRESSION [None]
  - ENTEROCOCCAL SEPSIS [None]
  - MENTAL STATUS CHANGES [None]
